FAERS Safety Report 14974397 (Version 1)
Quarter: 2018Q2

REPORT INFORMATION
  Report Type: Spontaneous
  Country: FR (occurrence: FR)
  Receive Date: 20180605
  Receipt Date: 20180605
  Transmission Date: 20180711
  Serious: Yes (Hospitalization, Other)
  Sender: FDA-Public Use
  Company Number: FR-TOLMAR, INC.-TOLG20180295

PATIENT
  Age: 27 Year
  Sex: Female

DRUGS (1)
  1. LIDOCAINE AND PRILOCAINE [Suspect]
     Active Substance: LIDOCAINE\PRILOCAINE
     Indication: LOCAL ANAESTHESIA
     Dosage: 2.5%/2.5%; APPLIED 55 GRAMS, APPLICATION AREA 2068 CM(2)
     Route: 061

REACTIONS (7)
  - Cardiotoxicity [Recovering/Resolving]
  - Cyanosis [Recovering/Resolving]
  - Overdose [None]
  - Neurotoxicity [Recovering/Resolving]
  - Methaemoglobinaemia [Recovering/Resolving]
  - Toxicity to various agents [Recovering/Resolving]
  - Product use issue [None]
